FAERS Safety Report 8440725-4 (Version None)
Quarter: 2012Q2

REPORT INFORMATION
  Report Type: 
  Country: None (occurrence: None)
  Receive Date: 20120615
  Receipt Date: 20120607
  Transmission Date: 20120825
  Serious: Yes (Other)
  Sender: FDA-Public Use
  Company Number: IE-JNJFOC-20120305701

PATIENT
  Sex: Male

DRUGS (7)
  1. ARCOXIA [Concomitant]
  2. SIMPONI [Suspect]
     Indication: RHEUMATOID ARTHRITIS
     Route: 058
     Dates: start: 20110510
  3. ZOPITAN [Concomitant]
  4. LEUCOVORIN CALCIUM [Concomitant]
  5. DIFENE [Concomitant]
  6. METHOTREXATE [Concomitant]
  7. LANSOPRAZOLE [Concomitant]

REACTIONS (1)
  - LIVER ABSCESS [None]
